FAERS Safety Report 9297054 (Version 1)
Quarter: 2013Q2

REPORT INFORMATION
  Report Type: Spontaneous
  Country: CA (occurrence: CA)
  Receive Date: 20130519
  Receipt Date: 20130519
  Transmission Date: 20140414
  Serious: Yes (Hospitalization)
  Sender: FDA-Public Use
  Company Number: CA-MYLANLABS-2013S1010354

PATIENT
  Age: 80 Year
  Sex: Female

DRUGS (5)
  1. CODEINE PHOSPHATE [Suspect]
     Indication: BACK PAIN
     Dosage: 30MG
     Route: 065
  2. MORPHINE [Suspect]
     Indication: BACK PAIN
     Dosage: 5MG TAKEN AS NEEDED
     Route: 065
  3. HYDROMORPHONE [Suspect]
     Indication: BACK PAIN
     Route: 065
  4. HYDROMORPHONE [Suspect]
     Indication: BACK PAIN
     Route: 048
  5. PARACETAMOL [Concomitant]
     Indication: BACK PAIN
     Dosage: 325MG
     Route: 065

REACTIONS (2)
  - Colonic pseudo-obstruction [Recovering/Resolving]
  - Constipation [Recovered/Resolved]
